FAERS Safety Report 12009716 (Version 1)
Quarter: 2016Q1

REPORT INFORMATION
  Report Type: Spontaneous
  Country: US (occurrence: US)
  Receive Date: 20160205
  Receipt Date: 20160205
  Transmission Date: 20160526
  Serious: No
  Sender: FDA-Public Use
  Company Number: US-HORIZON-RAV-0017-2016

PATIENT
  Age: 12 Year
  Sex: Female

DRUGS (1)
  1. RAVICTI [Suspect]
     Active Substance: GLYCEROL PHENYLBUTYRATE
     Indication: UREA CYCLE ENZYME DEFICIENCY
     Dosage: 2.5 ML THREE TIMES DAILY
     Route: 048
     Dates: start: 20151202

REACTIONS (2)
  - Dry skin [Unknown]
  - Weight increased [Unknown]
